FAERS Safety Report 5612951-0 (Version None)
Quarter: 2008Q1

REPORT INFORMATION
  Report Type: 
  Country: None (occurrence: None)
  Receive Date: 20080204
  Receipt Date: 20080128
  Transmission Date: 20080703
  Serious: No
  Sender: FDA-Public Use
  Company Number: FR-PFIZER INC-2008004209

PATIENT
  Sex: Male

DRUGS (3)
  1. VFEND [Suspect]
     Indication: BRONCHOPULMONARY ASPERGILLOSIS
     Route: 048
  2. VFEND [Suspect]
     Route: 048
  3. VFEND [Suspect]
     Route: 048

REACTIONS (1)
  - NO ADVERSE EVENT [None]
